FAERS Safety Report 13770447 (Version 2)
Quarter: 2017Q4

REPORT INFORMATION
  Report Type: Report from Study
  Country: JP (occurrence: JP)
  Receive Date: 20170719
  Receipt Date: 20171024
  Transmission Date: 20180320
  Serious: Yes (Hospitalization, Other)
  Sender: FDA-Public Use
  Company Number: JP-AMGEN-JPNCT2017109595

PATIENT
  Age: 69 Year
  Sex: Female
  Weight: 50 kg

DRUGS (20)
  1. PEGFILGRASTIM [Suspect]
     Active Substance: PEGFILGRASTIM
     Indication: COLONY STIMULATING FACTOR PROPHYLAXIS
     Dosage: 3.6 MG, UNK
     Route: 058
     Dates: start: 20170116, end: 20170116
  2. ENDOXAN                            /00021101/ [Suspect]
     Active Substance: CYCLOPHOSPHAMIDE
     Indication: BREAST CANCER
     Dosage: 860 MG, UNK
     Route: 041
     Dates: start: 20170112, end: 20170112
  3. ENDOXAN                            /00021101/ [Suspect]
     Active Substance: CYCLOPHOSPHAMIDE
     Dosage: 860 MG, UNK
     Route: 041
     Dates: start: 20170127, end: 20170127
  4. LETROZOLE. [Suspect]
     Active Substance: LETROZOLE
     Dosage: UNK, CYCLE 5
     Route: 048
  5. LETROZOLE. [Suspect]
     Active Substance: LETROZOLE
     Dosage: UNK, CYCLE 2
     Route: 048
  6. LETROZOLE. [Suspect]
     Active Substance: LETROZOLE
     Dosage: UNK, CYCLE 3
     Route: 048
  7. DECADRON [Concomitant]
     Active Substance: DEXAMETHASONE
     Dosage: UNK
     Route: 048
  8. EPIRUBICIN HYDROCHLORIDE. [Suspect]
     Active Substance: EPIRUBICIN HYDROCHLORIDE
     Dosage: 130 MG, UNK
     Route: 041
     Dates: start: 20170127, end: 20170127
  9. EPIRUBICIN HYDROCHLORIDE. [Suspect]
     Active Substance: EPIRUBICIN HYDROCHLORIDE
     Dosage: 130 MG, UNK
     Route: 041
     Dates: start: 20170210, end: 20170210
  10. GADOVIST [Suspect]
     Active Substance: GADOBUTROL
     Indication: PRODUCT USED FOR UNKNOWN INDICATION
     Dosage: UNK
     Route: 042
  11. LETROZOLE. [Suspect]
     Active Substance: LETROZOLE
     Indication: BREAST CANCER
     Dosage: UNK, CYCLE 1
     Route: 048
  12. EMEND [Concomitant]
     Active Substance: APREPITANT
     Dosage: UNK
     Route: 048
  13. PEGFILGRASTIM [Suspect]
     Active Substance: PEGFILGRASTIM
     Dosage: 3.6 MG, UNK
     Route: 058
     Dates: start: 20170213, end: 20170213
  14. EPIRUBICIN HYDROCHLORIDE. [Suspect]
     Active Substance: EPIRUBICIN HYDROCHLORIDE
     Indication: BREAST CANCER
     Dosage: 130 MG, UNK
     Route: 041
     Dates: start: 20170112, end: 20170112
  15. LETROZOLE. [Suspect]
     Active Substance: LETROZOLE
     Dosage: UNK, CYCLE 4
     Route: 048
  16. LETROZOLE. [Suspect]
     Active Substance: LETROZOLE
     Dosage: UNK, CYCLE 6
     Route: 048
  17. MAGMITT [Concomitant]
     Active Substance: MAGNESIUM OXIDE
     Dosage: UNK
     Route: 048
  18. PEGFILGRASTIM [Suspect]
     Active Substance: PEGFILGRASTIM
     Dosage: 3.6 MG, UNK
     Route: 058
     Dates: start: 20170130, end: 20170130
  19. ENDOXAN                            /00021101/ [Suspect]
     Active Substance: CYCLOPHOSPHAMIDE
     Dosage: 860 MG, UNK
     Route: 041
     Dates: start: 20170210, end: 20170210
  20. LORAZEPAM. [Concomitant]
     Active Substance: LORAZEPAM
     Dosage: UNK
     Route: 048

REACTIONS (2)
  - Chemotherapy [Unknown]
  - Interstitial lung disease [Recovered/Resolved]

NARRATIVE: CASE EVENT DATE: 20170224
